FAERS Safety Report 5701104-3 (Version None)
Quarter: 2008Q2

REPORT INFORMATION
  Report Type: 
  Country: None (occurrence: None)
  Receive Date: 20080410
  Receipt Date: 20080128
  Transmission Date: 20081010
  Serious: Yes (Death, Hospitalization, Other)
  Sender: FDA-Public Use
  Company Number: US-PFIZER INC-2008008301

PATIENT
  Sex: Male

DRUGS (2)
  1. CELEBREX [Suspect]
     Indication: ARTHRITIS
     Dates: start: 20001201, end: 20010301
  2. BEXTRA [Suspect]
     Indication: ARTHRITIS
     Dates: start: 20020821, end: 20030602

REACTIONS (1)
  - MYOCARDIAL INFARCTION [None]
